FAERS Safety Report 14141057 (Version 1)
Quarter: 2017Q4

REPORT INFORMATION
  Report Type: Spontaneous
  Country: US (occurrence: US)
  Receive Date: 20171027
  Receipt Date: 20171027
  Transmission Date: 20180321
  Serious: Yes (Other)
  Sender: FDA-Public Use
  Company Number: None

PATIENT
  Age: 73 Year
  Sex: Female
  Weight: 50.85 kg

DRUGS (8)
  1. SENIOR MULTIVITAMIN GUMMY [Concomitant]
  2. 81MG ASPIRIN [Concomitant]
  3. PRAVASTATIN. [Concomitant]
     Active Substance: PRAVASTATIN
  4. FISH OIL [Concomitant]
     Active Substance: FISH OIL
  5. METOPROLOL ER 25MG DR. REDDY^S [Suspect]
     Active Substance: METOPROLOL SUCCINATE
     Indication: HEART RATE INCREASED
     Dosage: ?          QUANTITY:1 TABLET(S);?
     Route: 048
     Dates: start: 20171009, end: 20171009
  6. COQ10 [Concomitant]
     Active Substance: UBIDECARENONE
  7. METOPROLOL ER 25MG DR. REDDY^S [Suspect]
     Active Substance: METOPROLOL SUCCINATE
     Indication: HYPERTENSION
     Dosage: ?          QUANTITY:1 TABLET(S);?
     Route: 048
     Dates: start: 20171009, end: 20171009
  8. LOSARTAN. [Concomitant]
     Active Substance: LOSARTAN

REACTIONS (4)
  - Cough [None]
  - Palpitations [None]
  - Insomnia [None]
  - Feeling abnormal [None]

NARRATIVE: CASE EVENT DATE: 20171009
